FAERS Safety Report 15015384 (Version 2)
Quarter: 2018Q3

REPORT INFORMATION
  Report Type: Spontaneous
  Country: US (occurrence: US)
  Receive Date: 20180615
  Receipt Date: 20180907
  Transmission Date: 20181010
  Serious: No
  Sender: FDA-Public Use
  Company Number: US-GLAXOSMITHKLINE-US2018101995

PATIENT
  Age: 87 Year
  Sex: Female

DRUGS (2)
  1. FLONASE [Suspect]
     Active Substance: FLUTICASONE PROPIONATE
     Dosage: UNK
  2. FLONASE [Suspect]
     Active Substance: FLUTICASONE PROPIONATE
     Indication: NASAL CONGESTION
     Dosage: UNK

REACTIONS (6)
  - Wrong technique in product usage process [Unknown]
  - Product packaging issue [Unknown]
  - Laceration [Unknown]
  - Expired product administered [Unknown]
  - Product quality issue [Unknown]
  - Product package associated injury [Unknown]
